FAERS Safety Report 13690890 (Version 3)
Quarter: 2017Q4

REPORT INFORMATION
  Report Type: Spontaneous
  Country: US (occurrence: US)
  Receive Date: 20170626
  Receipt Date: 20171226
  Transmission Date: 20180320
  Serious: No
  Sender: FDA-Public Use
  Company Number: US-CLOVIS ONCOLOGY-CLO-2017-000331

PATIENT
  Age: 52 Year
  Sex: Female

DRUGS (4)
  1. RUBRACA [Suspect]
     Active Substance: RUCAPARIB CAMSYLATE
     Dosage: 300 MG IN THE MORNING AND 600 MG IN THE EVENING
     Dates: start: 20170509, end: 20170609
  2. RUBRACA [Suspect]
     Active Substance: RUCAPARIB CAMSYLATE
     Dosage: 600 MG, BID
     Route: 048
     Dates: start: 201709
  3. RUBRACA [Suspect]
     Active Substance: RUCAPARIB CAMSYLATE
     Dosage: 600 MG, BID
     Route: 048
     Dates: start: 20170610, end: 201709
  4. RUBRACA [Suspect]
     Active Substance: RUCAPARIB CAMSYLATE
     Indication: OVARIAN CANCER
     Dosage: 300 MG, QD
     Route: 048
     Dates: start: 20170418, end: 20170508

REACTIONS (20)
  - Lymphadenopathy [Unknown]
  - Anxiety [Unknown]
  - Fatigue [Not Recovered/Not Resolved]
  - Abdominal discomfort [Unknown]
  - Allergic sinusitis [Unknown]
  - Sunburn [Not Recovered/Not Resolved]
  - Rash pruritic [Not Recovered/Not Resolved]
  - Adverse drug reaction [Unknown]
  - Liver function test increased [Unknown]
  - Pain in extremity [Unknown]
  - Neck pain [Unknown]
  - Rhinorrhoea [Unknown]
  - Insomnia [Unknown]
  - Rash [Not Recovered/Not Resolved]
  - Diarrhoea [Unknown]
  - Abdominal pain [Unknown]
  - Chest pain [Unknown]
  - Prescribed underdose [Unknown]
  - Nasal congestion [Unknown]
  - Dysgeusia [Unknown]

NARRATIVE: CASE EVENT DATE: 2017
